FAERS Safety Report 5150745-3 (Version None)
Quarter: 2006Q4

REPORT INFORMATION
  Report Type: 
  Country: None (occurrence: None)
  Receive Date: 20061108
  Receipt Date: 20061024
  Transmission Date: 20070319
  Serious: Yes (Hospitalization)
  Sender: FDA-Public Use
  Company Number: E3810-00283-SPO-JP

PATIENT
  Age: 67 Year
  Sex: Male
  Weight: 68 kg

DRUGS (23)
  1. RABEPRAZOLE SODIUM [Suspect]
     Indication: GASTRIC ULCER HAEMORRHAGE
     Dosage: 20 MG, 1 IN 1 D, ORAL
     Route: 048
     Dates: start: 20060916, end: 20060918
  2. SELBEX                                (TEPRENONE) [Suspect]
     Indication: GASTRIC ULCER HAEMORRHAGE
     Dosage: SEE IMAGE
     Route: 048
     Dates: start: 20060909, end: 20060913
  3. SELBEX                                (TEPRENONE) [Suspect]
     Indication: GASTRIC ULCER HAEMORRHAGE
     Dosage: SEE IMAGE
     Route: 048
     Dates: start: 20060914, end: 20060916
  4. LENDORMIN D                   (BROTIZOLAM) [Concomitant]
  5. SANMEL (SODIUM ALGINATE) [Concomitant]
  6. ALUMINUM HYDROXIDE AND MAGNESIUM TRISILICATE [Concomitant]
  7. THROMBIN LOCAL SOLUTION [Concomitant]
  8. ESIDRI (SER-AP-ES) [Concomitant]
  9. RIZE (CLOTIAZEPAM) [Concomitant]
  10. AM (AM) [Concomitant]
  11. ALLOTOP-L (NIFEDIPINE) [Concomitant]
  12. UNKNOWN DRUG [Concomitant]
  13. MOBIC [Concomitant]
  14. CEFAMEZIN ALPHA (CEFAZOLIN SODIUM) [Concomitant]
  15. PLEVITA S        (SUBVITAN) [Concomitant]
  16. ADONA    (CARBAZOCHROME SODIUM SULFONATE) [Concomitant]
  17. TRANSAMIN          (TRANEXAMIC ACID) [Concomitant]
  18. SOLITA-T NO .3     (SOLITA-T 3G) [Concomitant]
  19. OMEPRAZOLE [Concomitant]
  20. ISOTONIC SODIUM CHLORIDE SOLUTION         (ISOTONIC SOLUTIONS) [Concomitant]
  21. FERRICON [Concomitant]
  22. GLUCOSE (GLUCOSE) [Concomitant]
  23. LACTEC (LACTEC) [Concomitant]

REACTIONS (6)
  - BLOOD CREATINE PHOSPHOKINASE INCREASED [None]
  - BLOOD SODIUM DECREASED [None]
  - CHILLS [None]
  - GRANULOCYTOPENIA [None]
  - HEPATIC FUNCTION ABNORMAL [None]
  - PYREXIA [None]
